FAERS Safety Report 18656844 (Version 3)
Quarter: 2021Q2

REPORT INFORMATION
  Report Type: Spontaneous
  Country: US (occurrence: US)
  Receive Date: 20201224
  Receipt Date: 20210629
  Transmission Date: 20210717
  Serious: Yes (Other)
  Sender: FDA-Public Use
  Company Number: US-GLAXOSMITHKLINE-US2020247510

PATIENT
  Sex: Male

DRUGS (3)
  1. NUCALA [Suspect]
     Active Substance: MEPOLIZUMAB
     Indication: ASTHMA
  2. NUCALA [Suspect]
     Active Substance: MEPOLIZUMAB
     Indication: MULTIPLE ALLERGIES
     Dosage: UNK
     Dates: start: 2019
  3. NUCALA [Suspect]
     Active Substance: MEPOLIZUMAB
     Indication: CHRONIC OBSTRUCTIVE PULMONARY DISEASE

REACTIONS (6)
  - Blood pressure decreased [Recovered/Resolved]
  - Illness [Recovered/Resolved]
  - Circumoral swelling [Unknown]
  - Product dose omission issue [Recovered/Resolved]
  - Dyspnoea [Unknown]
  - Pulmonary congestion [Recovering/Resolving]
